FAERS Safety Report 5729982-2 (Version None)
Quarter: 2008Q2

REPORT INFORMATION
  Report Type: 
  Country: None (occurrence: None)
  Receive Date: 20080507
  Receipt Date: 20080503
  Transmission Date: 20081010
  Serious: Yes (Hospitalization)
  Sender: FDA-Public Use
  Company Number: GB-WYE-G01496708

PATIENT
  Sex: Female

DRUGS (1)
  1. TORISEL [Suspect]
     Dosage: WEEKLY, STANDARD DOSE
     Route: 042

REACTIONS (2)
  - DYSPNOEA [None]
  - PNEUMONITIS [None]
